FAERS Safety Report 22131593 (Version 1)
Quarter: 2023Q1

REPORT INFORMATION
  Report Type: Spontaneous
  Country: CN (occurrence: CN)
  Receive Date: 20230323
  Receipt Date: 20230323
  Transmission Date: 20230418
  Serious: Yes (Hospitalization)
  Sender: FDA-Public Use
  Company Number: CN-KI BIOPHARMA, LLC-2023KAM00006

PATIENT
  Age: 29 Year
  Sex: Male

DRUGS (7)
  1. CYTOMEGALOVIRUS IMMUNE GLOBULIN INTRAVENOUS (HUMAN) [Suspect]
     Active Substance: CYTOMEGALOVIRUS IMMUNE GLOBULIN INTRAVENOUS (HUMAN)
     Indication: Cytomegalovirus viraemia
     Dosage: 100 MG/KG, EVERY OTHER DAY
  2. METHYLPREDNISOLONE [Concomitant]
     Active Substance: METHYLPREDNISOLONE
     Indication: Acute graft versus host disease
     Dosage: 2 MG/KG (ALSO REPORTED AS 1.5 MG/KG)
  3. METHYLPREDNISOLONE [Concomitant]
     Active Substance: METHYLPREDNISOLONE
     Dosage: REDUCED BY 10% WEEKLY
  4. METHYLPREDNISOLONE [Concomitant]
     Active Substance: METHYLPREDNISOLONE
     Dosage: 70 MG, 1X/DAY
  5. METHYLPREDNISOLONE [Concomitant]
     Active Substance: METHYLPREDNISOLONE
     Dosage: 8 MG, 1X/DAY
  6. FOSCARNET [Concomitant]
     Active Substance: FOSCARNET
     Indication: Cytomegalovirus viraemia
     Dosage: 60 MG/KG, EVERY 8 HOURS
  7. FOSCARNET [Concomitant]
     Active Substance: FOSCARNET
     Dosage: 2 MG/0.05 ML , 1X/WEEK

REACTIONS (1)
  - Drug ineffective for unapproved indication [Recovered/Resolved]
